FAERS Safety Report 11844112 (Version 2)
Quarter: 2016Q1

REPORT INFORMATION
  Report Type: Spontaneous
  Country: US (occurrence: US)
  Receive Date: 20151217
  Receipt Date: 20160201
  Transmission Date: 20160526
  Serious: No
  Sender: FDA-Public Use
  Company Number: US-009507513-1512USA004064

PATIENT

DRUGS (2)
  1. METHYLPREDNISOLONE SODIUM SUCCINATE. [Suspect]
     Active Substance: METHYLPREDNISOLONE SODIUM SUCCINATE
     Indication: RELAPSING-REMITTING MULTIPLE SCLEROSIS
     Dosage: 1 G FOR 5 DAYS
     Route: 042
  2. PREDNISONE. [Suspect]
     Active Substance: PREDNISONE
     Indication: RELAPSING-REMITTING MULTIPLE SCLEROSIS
     Dosage: STARTED AT 80 MG A DAY TAPERED OVER 14-18 DAYS
     Route: 048

REACTIONS (1)
  - Drug ineffective [Unknown]
